FAERS Safety Report 22161306 (Version 7)
Quarter: 2025Q1

REPORT INFORMATION
  Report Type: Spontaneous
  Country: US (occurrence: US)
  Receive Date: 20230331
  Receipt Date: 20250325
  Transmission Date: 20250409
  Serious: No
  Sender: PFIZER
  Company Number: US-PFIZER INC-PV202200043592

PATIENT
  Age: 73 Year
  Sex: Female

DRUGS (3)
  1. BRAFTOVI [Suspect]
     Active Substance: ENCORAFENIB
     Indication: Malignant melanoma
     Dosage: 150 MG, DAILY (75 MG CAPSULE, TAKE 2 CAPSULES DAILY)
     Route: 048
  2. BRAFTOVI [Suspect]
     Active Substance: ENCORAFENIB
     Dosage: 75 MG, DAILY
     Route: 048
  3. MEKTOVI [Suspect]
     Active Substance: BINIMETINIB
     Indication: Malignant melanoma
     Dosage: 15 MG, 2X/DAY (TAKE 1 TABLET 2 TIMES DAILY)
     Route: 048

REACTIONS (3)
  - Decreased appetite [Unknown]
  - Taste disorder [Unknown]
  - Off label use [Unknown]
